FAERS Safety Report 21302435 (Version 1)
Quarter: 2022Q3

REPORT INFORMATION
  Report Type: Spontaneous
  Country: US (occurrence: US)
  Receive Date: 20220907
  Receipt Date: 20220907
  Transmission Date: 20221026
  Serious: No
  Sender: FDA-Public Use
  Company Number: US-ABBVIE-22K-163-4528898-00

PATIENT
  Sex: Female
  Weight: 65.3 kg

DRUGS (3)
  1. SYNTHROID [Suspect]
     Active Substance: LEVOTHYROXINE SODIUM
     Indication: Thyroid disorder
     Route: 048
     Dates: start: 200111
  2. LEVOXYL [Suspect]
     Active Substance: LEVOTHYROXINE SODIUM
     Indication: Thyroid disorder
     Route: 048
     Dates: start: 2001
  3. LEVOXYL [Suspect]
     Active Substance: LEVOTHYROXINE SODIUM
     Route: 048

REACTIONS (6)
  - Allergic reaction to excipient [Recovered/Resolved]
  - Dyspepsia [Recovered/Resolved]
  - Adverse drug reaction [Recovered/Resolved]
  - Epistaxis [Recovered/Resolved]
  - Blood cholesterol increased [Recovered/Resolved]
  - Fluid retention [Recovered/Resolved]
